FAERS Safety Report 8984104 (Version 1)
Quarter: 2012Q4

REPORT INFORMATION
  Report Type: Spontaneous
  Country: US (occurrence: None)
  Receive Date: 20121212
  Receipt Date: 20121212
  Transmission Date: 20130627
  Serious: Yes (Hospitalization)
  Sender: FDA-Public Use
  Company Number: IMP_06099_2012

PATIENT
  Age: 45 Year
  Sex: Male

DRUGS (9)
  1. DIVALPROEX [Suspect]
  2. DIVALPROEX [Suspect]
  3. DIVALPROEX [Suspect]
  4. LAMOTRIGINE [Suspect]
  5. RISPERIDONE [Concomitant]
  6. VITAMIN B1 [Concomitant]
  7. VITAMIN D3 [Concomitant]
  8. TOPIRAMATE [Concomitant]
  9. LORAZEPAM [Concomitant]

REACTIONS (8)
  - Mental status changes [None]
  - Ataxia [None]
  - Dysarthria [None]
  - Aggression [None]
  - Hallucination, visual [None]
  - Convulsion [None]
  - Toxicity to various agents [None]
  - Drug level increased [None]
